FAERS Safety Report 4551309-2 (Version None)
Quarter: 2005Q1

REPORT INFORMATION
  Report Type: 
  Country: None (occurrence: None)
  Receive Date: 20050110
  Receipt Date: 20041223
  Transmission Date: 20050727
  Serious: Yes (Other)
  Sender: FDA-Public Use
  Company Number: ACO_0037_2004

PATIENT
  Age: 27 Year
  Sex: Female

DRUGS (3)
  1. TERNELIN [Suspect]
     Indication: HYPERTONIA
     Dosage: DF QDAY PO
     Route: 048
     Dates: end: 20041214
  2. TERNELIN [Suspect]
     Indication: HYPERTONIA
     Dosage: DF QDAY PO
     Route: 048
  3. PAXIL [Suspect]
     Indication: DEPRESSION
     Dosage: DF PO
     Route: 048
     Dates: start: 20041029, end: 20041215

REACTIONS (5)
  - DRUG INTERACTION [None]
  - RESPIRATORY DISORDER [None]
  - SEROTONIN SYNDROME [None]
  - THERAPY NON-RESPONDER [None]
  - TREMOR [None]
